FAERS Safety Report 17416132 (Version 1)
Quarter: 2020Q1

REPORT INFORMATION
  Report Type: Spontaneous
  Country: JP (occurrence: JP)
  Receive Date: 20200213
  Receipt Date: 20200213
  Transmission Date: 20200409
  Serious: Yes (Other)
  Sender: FDA-Public Use
  Company Number: JP-BAYER-2019-206535

PATIENT
  Age: 67 Year
  Sex: Female

DRUGS (2)
  1. ADALAT [Suspect]
     Active Substance: NIFEDIPINE
     Indication: HYPERTENSION
     Dosage: UNK
     Dates: start: 20191113, end: 20191120
  2. STIVARGA [Suspect]
     Active Substance: REGORAFENIB
     Indication: GASTROINTESTINAL STROMAL TUMOUR
     Dosage: 3 DF
     Route: 048
     Dates: start: 20191106, end: 20200115

REACTIONS (5)
  - Gastrointestinal stromal tumour [Not Recovered/Not Resolved]
  - Blood pressure increased [Recovering/Resolving]
  - Rash [Recovering/Resolving]
  - Ear discomfort [None]
  - Tinnitus [Recovering/Resolving]

NARRATIVE: CASE EVENT DATE: 20191113
